FAERS Safety Report 7489498-2 (Version None)
Quarter: 2011Q2

REPORT INFORMATION
  Report Type: 
  Country: None (occurrence: None)
  Receive Date: 20110518
  Receipt Date: 20110516
  Transmission Date: 20111010
  Serious: Yes (Death)
  Sender: FDA-Public Use
  Company Number: DE-SANOFI-AVENTIS-2011SA029942

PATIENT
  Age: 22 Year
  Sex: Female
  Weight: 63 kg

DRUGS (7)
  1. DOCETAXEL [Suspect]
     Indication: BREAST NEOPLASM
     Dosage: 158MG
     Route: 041
     Dates: start: 20101210, end: 20101210
  2. FLUOROURACIL [Concomitant]
     Route: 042
     Dates: start: 20101210, end: 20101210
  3. CYCLOPHOSPHAMIDE [Concomitant]
     Route: 042
     Dates: start: 20101008, end: 20101008
  4. EPIRUBICIN [Concomitant]
     Route: 042
     Dates: start: 20101210, end: 20101210
  5. EPIRUBICIN [Concomitant]
     Route: 042
     Dates: start: 20101008, end: 20101008
  6. CYCLOPHOSPHAMIDE [Concomitant]
     Route: 042
     Dates: start: 20101210, end: 20101210
  7. FLUOROURACIL [Concomitant]
     Indication: BREAST NEOPLASM
     Route: 042
     Dates: start: 20101008, end: 20101008

REACTIONS (1)
  - SUDDEN DEATH [None]
